FAERS Safety Report 11929726 (Version 2)
Quarter: 2016Q1

REPORT INFORMATION
  Report Type: Spontaneous
  Country: IT (occurrence: IT)
  Receive Date: 20160120
  Receipt Date: 20160120
  Transmission Date: 20160526
  Serious: Yes (Other)
  Sender: FDA-Public Use
  Company Number: IT-ACTAVIS-2016-00918

PATIENT
  Age: 24 Year
  Sex: Male

DRUGS (7)
  1. VALPROIC ACID. [Suspect]
     Active Substance: VALPROIC ACID
     Indication: AGITATION
     Dosage: 1000 MG, DAILY
     Route: 065
  2. ARIPIPRAZOLE (UNKNOWN) [Interacting]
     Active Substance: ARIPIPRAZOLE
     Indication: AGITATION
     Dosage: 9.75 MG, TID
     Route: 030
  3. DELORAZEPAM [Interacting]
     Active Substance: DELORAZEPAM
     Indication: AGITATION
     Dosage: 2.5 MG, DAILY
     Route: 048
  4. CHLORPROMAZINE HYDROCHLORIDE (WATSON LABORATORIES) [Suspect]
     Active Substance: CHLORPROMAZINE HYDROCHLORIDE
     Indication: AGITATION
     Dosage: 180 MG, DAILY
     Route: 065
  5. CARBAMAZEPINE (UNKNOWN) [Suspect]
     Active Substance: CARBAMAZEPINE
     Indication: AGITATION
     Dosage: 400 MG, DAILY
     Route: 065
  6. LORAZEPAM (UNKNOWN) [Suspect]
     Active Substance: LORAZEPAM
     Indication: AGITATION
     Dosage: 2.5 MG, DAILY
     Route: 065
  7. DIAMORPHINE (UNKNOWN) [Suspect]
     Active Substance: DIACETYLMORPHINE
     Indication: DRUG ABUSE
     Dosage: UNK
     Route: 065

REACTIONS (5)
  - Agitation [Recovering/Resolving]
  - Drug interaction [Recovered/Resolved]
  - Drug abuse [Unknown]
  - Overdose [Unknown]
  - Hiccups [Recovered/Resolved]
